FAERS Safety Report 15016968 (Version 2)
Quarter: 2018Q3

REPORT INFORMATION
  Report Type: Spontaneous
  Country: US (occurrence: US)
  Receive Date: 20180615
  Receipt Date: 20180717
  Transmission Date: 20181010
  Serious: Yes (Hospitalization)
  Sender: FDA-Public Use
  Company Number: US-AKORN PHARMACEUTICALS-2018AKN00825

PATIENT
  Age: 26 Year
  Sex: Female
  Weight: 56.69 kg

DRUGS (7)
  1. MYORISAN [Suspect]
     Active Substance: ISOTRETINOIN
     Indication: ACNE
     Dosage: 40 MG, 1X/DAY ^IN AM^
     Dates: start: 20180412, end: 20180507
  2. TRAZODONE [Concomitant]
     Active Substance: TRAZODONE HYDROCHLORIDE
  3. MIRENA [Concomitant]
     Active Substance: LEVONORGESTREL
  4. FLONASE [Concomitant]
     Active Substance: FLUTICASONE PROPIONATE
  5. FIORICET [Concomitant]
     Active Substance: ACETAMINOPHEN\BUTALBITAL\CAFFEINE
  6. MYORISAN [Suspect]
     Active Substance: ISOTRETINOIN
     Dosage: 20 MG, 1X/DAY ^ON PM^
     Dates: start: 20180412, end: 20180507
  7. ZYRTEC [Concomitant]
     Active Substance: CETIRIZINE HYDROCHLORIDE

REACTIONS (2)
  - Migraine [Recovered/Resolved]
  - Status migrainosus [Recovered/Resolved]

NARRATIVE: CASE EVENT DATE: 201805
